FAERS Safety Report 22067144 (Version 1)
Quarter: 2023Q1

REPORT INFORMATION
  Report Type: Other
  Country: US (occurrence: US)
  Receive Date: 20230307
  Receipt Date: 20230307
  Transmission Date: 20230417
  Serious: Yes (Death, Hospitalization, Other)
  Sender: FDA-Public Use
  Company Number: US-GBT-020518

PATIENT
  Age: 41 Year
  Sex: Male

DRUGS (1)
  1. OXBRYTA [Suspect]
     Active Substance: VOXELOTOR
     Indication: Sickle cell disease
     Route: 048

REACTIONS (3)
  - Death [Fatal]
  - Intensive care [Unknown]
  - Off label use [Unknown]

NARRATIVE: CASE EVENT DATE: 20230209
